FAERS Safety Report 12528996 (Version 1)
Quarter: 2016Q3

REPORT INFORMATION
  Report Type: Spontaneous
  Country: US (occurrence: US)
  Receive Date: 20160705
  Receipt Date: 20160705
  Transmission Date: 20161109
  Serious: No
  Sender: FDA-Public Use
  Company Number: US-PFIZER INC-3082437

PATIENT
  Age: 42 Year
  Sex: Male

DRUGS (2)
  1. CEFTRIAXONE. [Concomitant]
     Active Substance: CEFTRIAXONE
     Indication: SEXUALLY TRANSMITTED DISEASE
     Dosage: 250 MG, UNK
     Route: 030
     Dates: start: 20151110
  2. LIDOCAINE HCL [Suspect]
     Active Substance: LIDOCAINE HYDROCHLORIDE
     Indication: SEXUALLY TRANSMITTED DISEASE
     Dosage: UNK
     Route: 030
     Dates: start: 20151110

REACTIONS (2)
  - Product use issue [Recovered/Resolved]
  - No adverse event [Unknown]

NARRATIVE: CASE EVENT DATE: 20151110
